FAERS Safety Report 8276058-9 (Version None)
Quarter: 2012Q2

REPORT INFORMATION
  Report Type: 
  Country: None (occurrence: None)
  Receive Date: 20120405
  Receipt Date: 20120328
  Transmission Date: 20120825
  Serious: Yes (Other)
  Sender: FDA-Public Use
  Company Number: 2011SP049877

PATIENT
  Age: 62 Year
  Sex: Male

DRUGS (7)
  1. NASONEX [Suspect]
     Indication: RHINITIS
     Dosage: 2 DF; QD; NAS
     Route: 045
     Dates: start: 20110801, end: 20110901
  2. SINGULAIR [Concomitant]
  3. NIFEDIPINE [Concomitant]
  4. SIMAVASTATIN [Concomitant]
  5. COMBIVENT [Concomitant]
  6. OMEPRAZOLE [Concomitant]
  7. METOPROLOL TARTRATE [Concomitant]

REACTIONS (9)
  - PHARYNGEAL OEDEMA [None]
  - OROPHARYNGEAL PAIN [None]
  - RHINALGIA [None]
  - DYSPHAGIA [None]
  - GLOSSODYNIA [None]
  - DYSPNOEA [None]
  - COUGH [None]
  - MALAISE [None]
  - EPISTAXIS [None]
